FAERS Safety Report 18690983 (Version 3)
Quarter: 2021Q1

REPORT INFORMATION
  Report Type: Spontaneous
  Country: US (occurrence: US)
  Receive Date: 20210101
  Receipt Date: 20210211
  Transmission Date: 20210419
  Serious: No
  Sender: FDA-Public Use
  Company Number: US-SA-2020SA376456

PATIENT
  Age: 26 Year
  Sex: Female

DRUGS (1)
  1. LANTUS SOLOSTAR [Suspect]
     Active Substance: INSULIN GLARGINE
     Indication: TYPE 1 DIABETES MELLITUS
     Dosage: 22 UNITS AT NIGHT
     Route: 065

REACTIONS (3)
  - Incorrect dose administered by device [Unknown]
  - Drug delivery system issue [Unknown]
  - Blood glucose increased [Unknown]
